FAERS Safety Report 7572179-4 (Version None)
Quarter: 2011Q2

REPORT INFORMATION
  Report Type: 
  Country: None (occurrence: None)
  Receive Date: 20110624
  Receipt Date: 20110610
  Transmission Date: 20111010
  Serious: Yes (Other)
  Sender: FDA-Public Use
  Company Number: PHHY2011US51627

PATIENT
  Sex: Female

DRUGS (7)
  1. RECLAST [Suspect]
     Route: 042
  2. RECLAST [Suspect]
     Route: 042
     Dates: start: 20110305
  3. ZOCOR [Concomitant]
  4. CALCIUM CARBONATE [Concomitant]
  5. CALCIUM CARBONATE [Suspect]
  6. MULTI-VITAMINS [Concomitant]
  7. RECLAST [Suspect]
     Indication: OSTEOPOROSIS
     Route: 042

REACTIONS (6)
  - PAIN IN EXTREMITY [None]
  - MALAISE [None]
  - NAUSEA [None]
  - DRUG HYPERSENSITIVITY [None]
  - FALL [None]
  - ARTHRALGIA [None]
